FAERS Safety Report 13330229 (Version 2)
Quarter: 2018Q2

REPORT INFORMATION
  Report Type: Spontaneous
  Country: GB (occurrence: GB)
  Receive Date: 20170314
  Receipt Date: 20180411
  Transmission Date: 20180711
  Serious: Yes (Hospitalization, Other)
  Sender: FDA-Public Use
  Company Number: GB-ROCHE-1903244

PATIENT
  Age: 32 Year
  Sex: Female

DRUGS (7)
  1. AZATHIOPRINE. [Suspect]
     Active Substance: AZATHIOPRINE
     Indication: DERMATOMYOSITIS
     Route: 065
  2. RITUXIMAB. [Suspect]
     Active Substance: RITUXIMAB
     Indication: DERMATOMYOSITIS
     Dosage: (1 G X 2) INDUCTION
     Route: 042
     Dates: start: 201305
  3. AZATHIOPRINE. [Suspect]
     Active Substance: AZATHIOPRINE
     Route: 065
     Dates: start: 201501
  4. PREDNISOLONE. [Suspect]
     Active Substance: PREDNISOLONE
     Indication: DERMATOMYOSITIS
     Route: 065
  5. PREDNISOLONE. [Suspect]
     Active Substance: PREDNISOLONE
     Route: 065
  6. RITUXIMAB. [Suspect]
     Active Substance: RITUXIMAB
     Dosage: 1G
     Route: 042
     Dates: start: 201501
  7. RITUXIMAB. [Suspect]
     Active Substance: RITUXIMAB
     Dosage: (1 G X 2)
     Route: 042
     Dates: start: 201405

REACTIONS (3)
  - Anterograde amnesia [Recovering/Resolving]
  - Pancytopenia [Recovering/Resolving]
  - Meningoencephalitis herpetic [Recovering/Resolving]

NARRATIVE: CASE EVENT DATE: 201506
